FAERS Safety Report 23942925 (Version 1)
Quarter: 2024Q2

REPORT INFORMATION
  Report Type: Spontaneous
  Country: CN (occurrence: CN)
  Receive Date: 20240605
  Receipt Date: 20240605
  Transmission Date: 20240715
  Serious: Yes (Hospitalization)
  Sender: FDA-Public Use
  Company Number: CN-SA-SAC20240605000031

PATIENT
  Age: 58 Year
  Sex: Male
  Weight: 53 kg

DRUGS (2)
  1. OXALIPLATIN [Suspect]
     Active Substance: OXALIPLATIN
     Indication: Gastric cancer
     Dosage: 140 MG, QD
     Route: 041
     Dates: start: 20240510, end: 20240510
  2. FLUOROURACIL [Concomitant]
     Active Substance: FLUOROURACIL
     Indication: Gastric cancer
     Dosage: 1.75 G, QD (PUMP INJECTION)
     Dates: start: 20240510, end: 20240511

REACTIONS (3)
  - Toxicity to various agents [Recovering/Resolving]
  - Peripheral sensory neuropathy [Recovering/Resolving]
  - Hypoaesthesia [Recovering/Resolving]

NARRATIVE: CASE EVENT DATE: 20240523
